FAERS Safety Report 15859631 (Version 5)
Quarter: 2019Q1

REPORT INFORMATION
  Report Type: Spontaneous
  Country: CA (occurrence: CA)
  Receive Date: 20190123
  Receipt Date: 20190313
  Transmission Date: 20190417
  Serious: Yes (Other)
  Sender: FDA-Public Use
  Company Number: CA-PFIZER INC-2019030916

PATIENT
  Age: 68 Year
  Sex: Female

DRUGS (1)
  1. METHOTREXATE SODIUM. [Suspect]
     Active Substance: METHOTREXATE SODIUM
     Dosage: UNK

REACTIONS (6)
  - Lung disorder [Unknown]
  - Cough [Unknown]
  - Interstitial lung disease [Unknown]
  - Drug ineffective [Unknown]
  - Pulmonary mass [Unknown]
  - Drug intolerance [Unknown]
